FAERS Safety Report 6149466-X (Version None)
Quarter: 2009Q2

REPORT INFORMATION
  Report Type: 
  Country: None (occurrence: None)
  Receive Date: 20090409
  Receipt Date: 20090331
  Transmission Date: 20091009
  Serious: Yes (Hospitalization)
  Sender: FDA-Public Use
  Company Number: JP-ELI_LILLY_AND_COMPANY-JP200903000831

PATIENT
  Sex: Male
  Weight: 48.5 kg

DRUGS (8)
  1. PEMETREXED [Suspect]
     Indication: PLEURAL MESOTHELIOMA MALIGNANT
     Dosage: 700 MG, OTHER
     Route: 042
     Dates: start: 20080502, end: 20080930
  2. PEMETREXED [Suspect]
     Dosage: 650 MG, OTHER
     Route: 042
     Dates: start: 20081204, end: 20081204
  3. CISPLATIN [Suspect]
     Indication: PLEURAL MESOTHELIOMA MALIGNANT
     Dosage: 100 MG, OTHER
     Route: 042
     Dates: start: 20080502, end: 20080930
  4. CISPLATIN [Suspect]
     Dosage: 50 MG, OTHER
     Route: 042
     Dates: start: 20081204, end: 20081204
  5. FOLIAMIN [Concomitant]
     Dosage: 10 MG, DAILY (1/D)
     Route: 048
     Dates: start: 20080417, end: 20090219
  6. CYANOCOBALAMIN [Concomitant]
     Dosage: 1 MG, UNK
     Route: 030
     Dates: start: 20080417, end: 20080417
  7. OXYCONTIN [Concomitant]
     Indication: CANCER PAIN
     Dosage: 10 MG, DAILY (1/D)
     Route: 048
  8. NOVAMIN [Concomitant]
     Indication: PROPHYLAXIS
     Dosage: 2 D/F, DAILY (1/D)
     Route: 048

REACTIONS (2)
  - NAUSEA [None]
  - WEIGHT DECREASED [None]
